FAERS Safety Report 16262563 (Version 4)
Quarter: 2020Q1

REPORT INFORMATION
  Report Type: Report from Study
  Country: None (occurrence: CA)
  Receive Date: 20190502
  Receipt Date: 20200302
  Transmission Date: 20200409
  Serious: Yes (Other)
  Sender: FDA-Public Use
  Company Number: CA-ABBVIE-19K-028-2764463-00

PATIENT
  Age: 39 Year
  Sex: Male

DRUGS (2)
  1. HUMIRA [Suspect]
     Active Substance: ADALIMUMAB
     Route: 058
     Dates: start: 20200225
  2. HUMIRA [Suspect]
     Active Substance: ADALIMUMAB
     Indication: HIDRADENITIS
     Route: 058
     Dates: start: 20171120, end: 201902

REACTIONS (6)
  - Injection site pain [Recovered/Resolved]
  - Fear of injection [Not Recovered/Not Resolved]
  - Umbilical hernia [Recovered/Resolved]
  - Skin lesion [Recovering/Resolving]
  - Injection site reaction [Not Recovered/Not Resolved]
  - Skin mass [Recovering/Resolving]

NARRATIVE: CASE EVENT DATE: 2020
